FAERS Safety Report 4505852-2 (Version None)
Quarter: 2004Q4

REPORT INFORMATION
  Report Type: 
  Country: None (occurrence: None)
  Receive Date: 20041025
  Receipt Date: 20040813
  Transmission Date: 20050328
  Serious: Yes (Hospitalization)
  Sender: FDA-Public Use
  Company Number: US-JNJFOC-20040303726

PATIENT
  Age: 62 Year
  Sex: Female
  Weight: 94 kg

DRUGS (35)
  1. REMICADE [Suspect]
     Indication: RHEUMATOID ARTHRITIS
     Dosage: INTRAVENOUS (SEE IMAGE)
     Route: 042
     Dates: start: 20001027
  2. REMICADE [Suspect]
     Indication: RHEUMATOID ARTHRITIS
     Dosage: INTRAVENOUS (SEE IMAGE)
     Route: 042
     Dates: start: 20001110
  3. REMICADE [Suspect]
     Indication: RHEUMATOID ARTHRITIS
     Dosage: INTRAVENOUS (SEE IMAGE)
     Route: 042
     Dates: start: 20001208
  4. REMICADE [Suspect]
     Indication: RHEUMATOID ARTHRITIS
     Dosage: INTRAVENOUS (SEE IMAGE)
     Route: 042
     Dates: start: 20010205
  5. REMICADE [Suspect]
     Indication: RHEUMATOID ARTHRITIS
     Dosage: INTRAVENOUS (SEE IMAGE)
     Route: 042
     Dates: start: 20010402
  6. REMICADE [Suspect]
     Indication: RHEUMATOID ARTHRITIS
     Dosage: INTRAVENOUS (SEE IMAGE)
     Route: 042
     Dates: start: 20010604
  7. REMICADE [Suspect]
     Indication: RHEUMATOID ARTHRITIS
     Dosage: INTRAVENOUS (SEE IMAGE)
     Route: 042
     Dates: start: 20010730
  8. REMICADE [Suspect]
     Indication: RHEUMATOID ARTHRITIS
     Dosage: INTRAVENOUS (SEE IMAGE)
     Route: 042
     Dates: start: 20010924
  9. REMICADE [Suspect]
     Indication: RHEUMATOID ARTHRITIS
     Dosage: INTRAVENOUS (SEE IMAGE)
     Route: 042
     Dates: start: 20011119
  10. REMICADE [Suspect]
     Indication: RHEUMATOID ARTHRITIS
     Dosage: INTRAVENOUS (SEE IMAGE)
     Route: 042
     Dates: start: 20020114
  11. REMICADE [Suspect]
     Indication: RHEUMATOID ARTHRITIS
     Dosage: INTRAVENOUS (SEE IMAGE)
     Route: 042
     Dates: start: 20020304
  12. REMICADE [Suspect]
     Indication: RHEUMATOID ARTHRITIS
     Dosage: INTRAVENOUS (SEE IMAGE)
     Route: 042
     Dates: start: 20020430
  13. REMICADE [Suspect]
     Indication: RHEUMATOID ARTHRITIS
     Dosage: INTRAVENOUS (SEE IMAGE)
     Route: 042
     Dates: start: 20020624
  14. REMICADE [Suspect]
     Indication: RHEUMATOID ARTHRITIS
     Dosage: INTRAVENOUS (SEE IMAGE)
     Route: 042
     Dates: start: 20020819
  15. REMICADE [Suspect]
     Indication: RHEUMATOID ARTHRITIS
     Dosage: INTRAVENOUS (SEE IMAGE)
     Route: 042
     Dates: start: 20021014
  16. REMICADE [Suspect]
     Indication: RHEUMATOID ARTHRITIS
     Dosage: INTRAVENOUS (SEE IMAGE)
     Route: 042
     Dates: start: 20021209
  17. REMICADE [Suspect]
     Indication: RHEUMATOID ARTHRITIS
     Dosage: INTRAVENOUS (SEE IMAGE)
     Route: 042
     Dates: start: 20030203
  18. REMICADE [Suspect]
     Indication: RHEUMATOID ARTHRITIS
     Dosage: INTRAVENOUS (SEE IMAGE)
     Route: 042
     Dates: start: 20030331
  19. REMICADE [Suspect]
     Indication: RHEUMATOID ARTHRITIS
     Dosage: INTRAVENOUS (SEE IMAGE)
     Route: 042
     Dates: start: 20030602
  20. REMICADE [Suspect]
     Indication: RHEUMATOID ARTHRITIS
     Dosage: INTRAVENOUS (SEE IMAGE)
     Route: 042
     Dates: start: 20030728
  21. REMICADE [Suspect]
     Indication: RHEUMATOID ARTHRITIS
     Dosage: INTRAVENOUS (SEE IMAGE)
     Route: 042
     Dates: start: 20031014
  22. REMICADE [Suspect]
     Indication: RHEUMATOID ARTHRITIS
     Dosage: INTRAVENOUS (SEE IMAGE)
     Route: 042
     Dates: start: 20031208
  23. REMICADE [Suspect]
     Indication: RHEUMATOID ARTHRITIS
     Dosage: INTRAVENOUS (SEE IMAGE)
     Route: 042
     Dates: start: 20040202
  24. REMICADE [Suspect]
     Indication: RHEUMATOID ARTHRITIS
     Dosage: INTRAVENOUS (SEE IMAGE)
     Route: 042
     Dates: start: 20040325
  25. METHOTREXATE [Concomitant]
  26. ARAVA [Concomitant]
  27. CAPOTRIL [Concomitant]
  28. LASIX [Concomitant]
  29. COMBIVENT MDI (COMBIVENT) [Concomitant]
  30. FLOVENT MDI (FLUTICASONE PROPIONATE) [Concomitant]
  31. WELLBUTRIN SR [Concomitant]
  32. ZYRTEC [Concomitant]
  33. GLUCOTROL XL [Concomitant]
  34. POTASSIUM CHLORIDE [Concomitant]
  35. ASPIRIN [Concomitant]

REACTIONS (1)
  - ARTHRALGIA [None]
